FAERS Safety Report 8718997 (Version 3)
Quarter: 2012Q4

REPORT INFORMATION
  Report Type: 
  Country: US (occurrence: US)
  Receive Date: 20120812
  Receipt Date: 20121023
  Transmission Date: 20130627
  Serious: No
  Sender: FDA-Public Use
  Company Number: US-009507513-1207USA013097

PATIENT
  Sex: Female

DRUGS (1)
  1. NOROXIN [Suspect]
     Indication: PROPHYLAXIS
     Dosage: 400 mg, bid
     Route: 050

REACTIONS (4)
  - Product solubility abnormal [Unknown]
  - Wrong technique in drug usage process [Unknown]
  - Incorrect route of drug administration [Unknown]
  - No adverse event [Unknown]
